FAERS Safety Report 12356072 (Version 1)
Quarter: 2016Q2

REPORT INFORMATION
  Report Type: Spontaneous
  Country: US (occurrence: US)
  Receive Date: 20160511
  Receipt Date: 20160511
  Transmission Date: 20160815
  Serious: No
  Sender: FDA-Public Use
  Company Number: US-ACTAVIS-2016-00465

PATIENT
  Sex: Female

DRUGS (2)
  1. MINOXIDIL (AMALLC) [Suspect]
     Active Substance: MINOXIDIL
     Indication: ALOPECIA
  2. MINOXIDIL (AMALLC) [Suspect]
     Active Substance: MINOXIDIL
     Indication: HAIR INJURY
     Dosage: UNK, UNKNOWN
     Route: 061

REACTIONS (2)
  - Headache [Unknown]
  - Product use issue [Unknown]
